FAERS Safety Report 6523475-0 (Version None)
Quarter: 2009Q4

REPORT INFORMATION
  Report Type: 
  Country: None (occurrence: None)
  Receive Date: 20091231
  Receipt Date: 20091218
  Transmission Date: 20100525
  Serious: Yes (Other)
  Sender: FDA-Public Use
  Company Number: PHHY2009CA48321

PATIENT
  Sex: Female

DRUGS (5)
  1. CLOZARIL [Suspect]
     Indication: PSYCHOTIC DISORDER
     Dosage: 375 MG DAILY
     Route: 048
     Dates: start: 20030514, end: 20091102
  2. VALPROIC ACID [Concomitant]
  3. CLONAZEPAM [Concomitant]
     Dosage: 0.5 MG, QHS
  4. INFLUENZA VACCINE [Concomitant]
     Dosage: UNK
     Dates: start: 20091030
  5. DIVALPROEX SODIUM [Concomitant]
     Dosage: 250 MG, 1 TABLET IN THE MORNING AND 2 TABLETS AT NIGHT

REACTIONS (4)
  - AGRANULOCYTOSIS [None]
  - CERVIX CARCINOMA [None]
  - NASAL CONGESTION [None]
  - WHITE BLOOD CELL COUNT DECREASED [None]
